FAERS Safety Report 22319903 (Version 3)
Quarter: 2024Q2

REPORT INFORMATION
  Report Type: Spontaneous
  Country: US (occurrence: US)
  Receive Date: 20230515
  Receipt Date: 20240417
  Transmission Date: 20240716
  Serious: No
  Sender: FDA-Public Use
  Company Number: US-VERTEX PHARMACEUTICALS-2023-006808

PATIENT

DRUGS (2)
  1. TRIKAFTA [Suspect]
     Active Substance: ELEXACAFTOR\IVACAFTOR\TEZACAFTOR
     Indication: Cystic fibrosis
     Dosage: UNK
     Route: 048
  2. UNSPECIFIED INGREDIENT [Suspect]
     Active Substance: UNSPECIFIED INGREDIENT
     Indication: Gastrointestinal disorder
     Dosage: HIGH DOSE
     Route: 065

REACTIONS (4)
  - Inflammatory bowel disease [Not Recovered/Not Resolved]
  - Gastrointestinal disorder [Unknown]
  - Constipation [Unknown]
  - Abnormal faeces [Not Recovered/Not Resolved]
